FAERS Safety Report 10610698 (Version 3)
Quarter: 2015Q2

REPORT INFORMATION
  Report Type: Spontaneous
  Country: US (occurrence: US)
  Receive Date: 20141126
  Receipt Date: 20150529
  Transmission Date: 20150821
  Serious: Yes (Life-Threatening, Hospitalization)
  Sender: FDA-Public Use
  Company Number: US-BAYER-2014-173363

PATIENT
  Age: 19 Year
  Sex: Female
  Weight: 57 kg

DRUGS (2)
  1. MIRENA [Suspect]
     Active Substance: LEVONORGESTREL
     Indication: CONTRACEPTION
     Dosage: 20 MCG/24HR, CONT
     Route: 015
     Dates: start: 20120314, end: 20121228
  2. DOXYCYCLINE. [Concomitant]
     Active Substance: DOXYCYCLINE
     Dosage: 100 MG, BID
     Dates: start: 20120709

REACTIONS (12)
  - Device issue [None]
  - Abdominal pain [None]
  - Injury [None]
  - General physical health deterioration [None]
  - Anxiety [None]
  - Emotional distress [None]
  - Pregnancy with contraceptive device [None]
  - Uterine perforation [None]
  - Anhedonia [None]
  - Infection [None]
  - Pain [None]
  - Drug ineffective [None]

NARRATIVE: CASE EVENT DATE: 201204
